FAERS Safety Report 9500092 (Version 1)
Quarter: 2013Q3

REPORT INFORMATION
  Report Type: Spontaneous
  Country: US (occurrence: None)
  Receive Date: 20130904
  Receipt Date: 20130904
  Transmission Date: 20140515
  Serious: No
  Sender: FDA-Public Use
  Company Number: None

PATIENT
  Age: 56 Year
  Sex: Male

DRUGS (1)
  1. EGRIFTA 2 MG EMD SERONO [Suspect]
     Indication: LIPODYSTROPHY ACQUIRED
     Dosage: 2MG DAILY SUBQ
     Route: 058
     Dates: start: 201210, end: 201308

REACTIONS (4)
  - Drug ineffective [None]
  - Injection site bruising [None]
  - Injection site irritation [None]
  - Dermal absorption impaired [None]
